FAERS Safety Report 13895447 (Version 1)
Quarter: 2017Q3

REPORT INFORMATION
  Report Type: Spontaneous
  Country: US (occurrence: US)
  Receive Date: 20170818
  Receipt Date: 20170818
  Transmission Date: 20171127
  Serious: Yes (Life-Threatening)
  Sender: FDA-Public Use
  Company Number: None

PATIENT
  Age: 43 Year
  Sex: Female
  Weight: 97.65 kg

DRUGS (1)
  1. FINACEA FOAM [Suspect]
     Active Substance: AZELAIC ACID
     Indication: ROSACEA
     Dosage: ?          QUANTITY:1 PALM SIZE;?
     Route: 061
     Dates: start: 20170809, end: 20170817

REACTIONS (8)
  - Headache [None]
  - Rash [None]
  - Abdominal pain upper [None]
  - Hyperhidrosis [None]
  - Erythema [None]
  - Feeling abnormal [None]
  - Abdominal pain [None]
  - Feeling hot [None]

NARRATIVE: CASE EVENT DATE: 20170817
